FAERS Safety Report 7321780-1 (Version None)
Quarter: 2011Q1

REPORT INFORMATION
  Report Type: 
  Country: None (occurrence: None)
  Receive Date: 20110228
  Receipt Date: 20110217
  Transmission Date: 20110831
  Serious: Yes (Other)
  Sender: FDA-Public Use
  Company Number: US-ASTRAZENECA-2011SE09379

PATIENT
  Age: 54 Year
  Sex: Male

DRUGS (5)
  1. SEROQUEL [Suspect]
     Indication: DEPRESSION
     Route: 048
     Dates: start: 20090101
  2. SEROQUEL [Suspect]
     Route: 048
  3. SEROQUEL [Suspect]
     Route: 048
  4. CYMBALTA [Concomitant]
     Dosage: AT NIGHT
  5. FLORAZAPAM [Concomitant]
     Dosage: AT NIGHT

REACTIONS (6)
  - INSOMNIA [None]
  - FALL [None]
  - PAIN [None]
  - LIGAMENT RUPTURE [None]
  - FEELING JITTERY [None]
  - WEIGHT INCREASED [None]
